FAERS Safety Report 24945745 (Version 2)
Quarter: 2025Q4

REPORT INFORMATION
  Report Type: Report from Study
  Country: US (occurrence: US)
  Receive Date: 20250209
  Receipt Date: 20251123
  Transmission Date: 20260118
  Serious: Yes (Other)
  Sender: ABBVIE
  Company Number: US-ABBVIE-6122371

PATIENT
  Sex: Male

DRUGS (2)
  1. HUMIRA [Suspect]
     Active Substance: ADALIMUMAB
     Indication: Rheumatoid arthritis
     Dosage: CITRATE FREE  ?SOLUTION FOR INJECTION IN PRE-FILLED SYRINGE
     Route: 058
     Dates: start: 20220301
  2. HUMIRA [Suspect]
     Active Substance: ADALIMUMAB
     Indication: Rheumatoid arthritis
     Dosage: CITRATE FREE ?SOLUTION FOR INJECTION IN PRE-FILLED PEN
     Route: 058

REACTIONS (4)
  - Knee arthroplasty [Recovering/Resolving]
  - Malaise [Recovering/Resolving]
  - Renal disorder [Recovering/Resolving]
  - Therapeutic product effect incomplete [Unknown]
